FAERS Safety Report 16900183 (Version 1)
Quarter: 2019Q4

REPORT INFORMATION
  Report Type: Spontaneous
  Country: DE (occurrence: DE)
  Receive Date: 20191009
  Receipt Date: 20191009
  Transmission Date: 20200122
  Serious: Yes (Congenital Anomaly)
  Sender: FDA-Public Use
  Company Number: DE-ASTRAZENECA-2019SF39497

PATIENT
  Age: 0 Year
  Sex: Female
  Weight: 3 kg

DRUGS (4)
  1. UNACID [Concomitant]
     Indication: BACTERIAL INFECTION
     Route: 064
  2. HYDROCORTISONE. [Concomitant]
     Active Substance: HYDROCORTISONE
     Indication: SECONDARY ADRENOCORTICAL INSUFFICIENCY
     Dosage: 30 [MG/D (15-10-5) ]
     Route: 064
     Dates: start: 20171130, end: 20180807
  3. IBANDRONIC ACID. [Concomitant]
     Active Substance: IBANDRONIC ACID
     Indication: OSTEOPOROSIS
     Dosage: UNTIL 7 TO 10 WEEKS PRECONCEPTION
     Route: 064
  4. SEROQUEL [Suspect]
     Active Substance: QUETIAPINE FUMARATE
     Indication: SLEEP DISORDER
     Route: 064
     Dates: start: 20171130, end: 20180807

REACTIONS (3)
  - Pyelocaliectasis [Unknown]
  - Foetal exposure during pregnancy [Unknown]
  - Vesicoureteric reflux [Unknown]
